FAERS Safety Report 21659387 (Version 1)
Quarter: 2022Q4

REPORT INFORMATION
  Report Type: Spontaneous
  Country: US (occurrence: US)
  Receive Date: 20221129
  Receipt Date: 20221129
  Transmission Date: 20230113
  Serious: No
  Sender: FDA-Public Use
  Company Number: US-BoehringerIngelheim-2022-BI-205442

PATIENT
  Sex: Male

DRUGS (2)
  1. JARDIANCE [Suspect]
     Active Substance: EMPAGLIFLOZIN
     Indication: Type 2 diabetes mellitus
     Dates: start: 2022
  2. Super C Vitamin [Concomitant]
     Indication: Product used for unknown indication

REACTIONS (3)
  - Umbilical hernia [Recovered/Resolved]
  - Cholelithiasis [Recovered/Resolved]
  - Cataract [Recovered/Resolved]
